FAERS Safety Report 7126079-4 (Version None)
Quarter: 2010Q4

REPORT INFORMATION
  Report Type: 
  Country: None (occurrence: None)
  Receive Date: 20101129
  Receipt Date: 20101117
  Transmission Date: 20110411
  Serious: Yes (Hospitalization, Other)
  Sender: FDA-Public Use
  Company Number: JP-MERCK-1003USA02988

PATIENT
  Age: 88 Year
  Sex: Female

DRUGS (4)
  1. JANUVIA [Suspect]
     Indication: DIABETES MELLITUS
     Route: 048
     Dates: start: 20100119, end: 20100303
  2. PERDIPINE [Concomitant]
     Indication: HYPERTENSION
     Route: 048
     Dates: end: 20100303
  3. PERSANTIN [Concomitant]
     Route: 048
     Dates: end: 20100303
  4. LASIX [Concomitant]
     Route: 048
     Dates: end: 20100303

REACTIONS (1)
  - HYPERGLYCAEMIA [None]
